FAERS Safety Report 13511590 (Version 1)
Quarter: 2017Q2

REPORT INFORMATION
  Report Type: Spontaneous
  Country: CA (occurrence: CA)
  Receive Date: 20170504
  Receipt Date: 20170504
  Transmission Date: 20170830
  Serious: Yes (Other)
  Sender: FDA-Public Use
  Company Number: CA-TEVA-765223ACC

PATIENT
  Age: 63 Year
  Sex: Female
  Weight: 92 kg

DRUGS (1)
  1. WARFARIN [Suspect]
     Active Substance: WARFARIN

REACTIONS (2)
  - Product substitution issue [Recovered/Resolved]
  - International normalised ratio abnormal [Recovered/Resolved]
